FAERS Safety Report 7780624-4 (Version None)
Quarter: 2011Q3

REPORT INFORMATION
  Report Type: 
  Country: None (occurrence: None)
  Receive Date: 20110927
  Receipt Date: 20101112
  Transmission Date: 20111222
  Serious: No
  Sender: FDA-Public Use
  Company Number: US-BRISTOL-MYERS SQUIBB COMPANY-15383235

PATIENT
  Sex: Male

DRUGS (1)
  1. AVAPRO [Suspect]

REACTIONS (2)
  - HYPERTENSION [None]
  - DIZZINESS [None]
